FAERS Safety Report 5416014-9 (Version None)
Quarter: 2007Q3

REPORT INFORMATION
  Report Type: 
  Country: None (occurrence: None)
  Receive Date: 20070718
  Receipt Date: 20070123
  Transmission Date: 20080115
  Serious: Yes (Other)
  Sender: FDA-Public Use
  Company Number: 2007006326

PATIENT
  Age: 62 Year
  Sex: Male
  Weight: 93.9 kg

DRUGS (3)
  1. CELEBREX [Suspect]
     Indication: ARTHRITIS
     Dates: start: 20040101, end: 20061001
  2. BYETTA [Suspect]
     Indication: TYPE 2 DIABETES MELLITUS
     Dosage: 10 MCG (5 MCG,2 IN 1 D),SUBCUTANEOUS
     Route: 058
     Dates: start: 20060801
  3. VOLTAREN [Concomitant]

REACTIONS (3)
  - ARTHRITIS [None]
  - BLOOD GLUCOSE INCREASED [None]
  - INJECTION SITE PAIN [None]
